FAERS Safety Report 19162434 (Version 1)
Quarter: 2021Q2

REPORT INFORMATION
  Report Type: Other
  Country: US (occurrence: US)
  Receive Date: 20210421
  Receipt Date: 20210421
  Transmission Date: 20210717
  Serious: No
  Sender: FDA-Public Use
  Company Number: US-ROCHE-2602115

PATIENT
  Age: 35 Year
  Sex: Female

DRUGS (1)
  1. OCREVUS [Suspect]
     Active Substance: OCRELIZUMAB
     Indication: RELAPSING-REMITTING MULTIPLE SCLEROSIS
     Dosage: HER SECOND INFUSION WAS ON 23/MAR/2018 AND HER LAST DOSE OCRELIZUMAB WAS ON /SEP/2018
     Route: 065
     Dates: start: 20180309

REACTIONS (3)
  - Visual impairment [Unknown]
  - Maternal exposure before pregnancy [Unknown]
  - COVID-19 [Unknown]
